FAERS Safety Report 20950014 (Version 1)
Quarter: 2022Q2

REPORT INFORMATION
  Report Type: Spontaneous
  Country: US (occurrence: US)
  Receive Date: 20220613
  Receipt Date: 20220613
  Transmission Date: 20220721
  Serious: Yes (Hospitalization)
  Sender: FDA-Public Use
  Company Number: US-STRIDES ARCOLAB LIMITED-2022SP003596

PATIENT
  Age: 76 Year
  Sex: Male

DRUGS (7)
  1. HYDROCORTISONE [Suspect]
     Active Substance: HYDROCORTISONE
     Indication: Myxoedema coma
     Dosage: UNK
     Route: 065
  2. LEVOTHYROXINE [Suspect]
     Active Substance: LEVOTHYROXINE
     Indication: Myxoedema coma
     Dosage: UNK
     Route: 065
  3. LIOTHYRONINE [Suspect]
     Active Substance: LIOTHYRONINE
     Indication: Myxoedema coma
     Dosage: UNK
     Route: 065
  4. ATROPINE [Concomitant]
     Active Substance: ATROPINE
     Indication: Bradycardia
     Dosage: UNK
     Route: 065
  5. AMIODARONE [Concomitant]
     Active Substance: AMIODARONE
     Indication: Atrial fibrillation
     Dosage: UNK
     Route: 065
  6. NOREPINEPHRINE [Concomitant]
     Active Substance: NOREPINEPHRINE
     Indication: Cardiogenic shock
     Dosage: UNK
     Route: 065
  7. DOPAMINE [Concomitant]
     Active Substance: DOPAMINE HYDROCHLORIDE
     Indication: Cardiogenic shock
     Dosage: UNK
     Route: 065

REACTIONS (2)
  - Adrenal insufficiency [Unknown]
  - Off label use [Unknown]
